FAERS Safety Report 15137146 (Version 1)
Quarter: 2018Q3

REPORT INFORMATION
  Report Type: Spontaneous
  Country: US (occurrence: US)
  Receive Date: 20180712
  Receipt Date: 20180712
  Transmission Date: 20181010
  Serious: No
  Sender: FDA-Public Use
  Company Number: US-FOUNDATIONCONSUMERHC-2018-US-009604

PATIENT
  Age: 48 Year
  Sex: Female
  Weight: 53.52 kg

DRUGS (4)
  1. WOMEN^S ONE?A?DAY VITAMIN [Concomitant]
     Route: 048
  2. PLAN B ONE?STEP [Suspect]
     Active Substance: LEVONORGESTREL
     Indication: POST COITAL CONTRACEPTION
     Dosage: 1.5MG
     Route: 048
     Dates: start: 20180526, end: 20180526
  3. ACYCLOVIR. [Concomitant]
     Active Substance: ACYCLOVIR
     Dosage: ^SOMETIMES^
  4. CALCIUM WITH VITAMIN D UNSPECIFIED [Concomitant]
     Route: 048

REACTIONS (2)
  - Oligomenorrhoea [Not Recovered/Not Resolved]
  - Menstrual disorder [Not Recovered/Not Resolved]

NARRATIVE: CASE EVENT DATE: 20180602
